FAERS Safety Report 7485860-2 (Version None)
Quarter: 2011Q2

REPORT INFORMATION
  Report Type: 
  Country: None (occurrence: None)
  Receive Date: 20110517
  Receipt Date: 20110112
  Transmission Date: 20111010
  Serious: Yes (Other)
  Sender: FDA-Public Use
  Company Number: EC-BAYER-2011-008817

PATIENT
  Sex: Female

DRUGS (1)
  1. QLAIRA [Suspect]
     Indication: MENORRHAGIA
     Dosage: UNK
     Route: 048

REACTIONS (1)
  - RECTAL HAEMORRHAGE [None]
